FAERS Safety Report 5202837-8 (Version None)
Quarter: 2006Q4

REPORT INFORMATION
  Report Type: 
  Country: None (occurrence: None)
  Receive Date: 20061018
  Receipt Date: 20060612
  Transmission Date: 20070319
  Serious: Yes (Hospitalization)
  Sender: FDA-Public Use
  Company Number: PHEH2006US07695

PATIENT
  Age: 80 Year
  Sex: Male

DRUGS (2)
  1. ZOMETA [Suspect]
     Indication: PROSTATE CANCER
     Dosage: ONCE/SINGLE/INFUSION
     Dates: start: 20060606
  2. ZOLADEX [Concomitant]

REACTIONS (1)
  - PAIN [None]
